FAERS Safety Report 7564806-2 (Version None)
Quarter: 2011Q2

REPORT INFORMATION
  Report Type: 
  Country: None (occurrence: None)
  Receive Date: 20110622
  Receipt Date: 20101215
  Transmission Date: 20111010
  Serious: Yes (Other)
  Sender: FDA-Public Use
  Company Number: US-MYLANLABS-2010S1022272

PATIENT
  Age: 81 Year
  Sex: Female

DRUGS (8)
  1. POTASSIUM CHLORIDE [Concomitant]
     Route: 048
  2. CLOZAPINE [Suspect]
     Route: 048
     Dates: end: 20101129
  3. ROCEPHIN [Concomitant]
     Route: 030
     Dates: start: 20101122, end: 20101129
  4. M.V.I. [Concomitant]
     Route: 048
  5. VALPROIC ACID [Concomitant]
     Route: 048
  6. CLOZAPINE [Suspect]
     Route: 048
     Dates: end: 20101129
  7. CLOZAPINE [Suspect]
     Route: 048
     Dates: end: 20101129
  8. MAGNESIUM OXIDE [Concomitant]
     Route: 048

REACTIONS (2)
  - LEUKOPENIA [None]
  - GRANULOCYTOPENIA [None]
